FAERS Safety Report 9185672 (Version 1)
Quarter: 2013Q1

REPORT INFORMATION
  Report Type: Spontaneous
  Country: CA (occurrence: CA)
  Receive Date: 20130325
  Receipt Date: 20130325
  Transmission Date: 20140127
  Serious: Yes (Other)
  Sender: FDA-Public Use
  Company Number: CA-AMGEN-CANSP2013018781

PATIENT
  Age: 68 Year
  Sex: Female

DRUGS (8)
  1. ENBREL [Suspect]
     Indication: RHEUMATOID ARTHRITIS
     Dosage: 50 MG, QWK
     Dates: start: 20111228
  2. CELEBREX [Concomitant]
     Dosage: 200 MG, BID
  3. LYRICA [Concomitant]
     Dosage: 300 MG, OD
  4. TYLENOL EXTRA STRENGTH [Concomitant]
     Dosage: UNK
  5. HYDROCHLOROTHIAZIDE [Concomitant]
     Dosage: 2.5 MG, UNK
  6. ROSUVASTATIN                       /01588602/ [Concomitant]
     Dosage: 20 MG, UNK
  7. NEXIUM                             /01479302/ [Concomitant]
     Dosage: 40 MG, BID
  8. DOMPERIDONE                        /00498202/ [Concomitant]
     Dosage: UNK UNK, AS NECESSARY

REACTIONS (4)
  - Cardiomegaly [Unknown]
  - Heart rate decreased [Unknown]
  - Dyspnoea [Not Recovered/Not Resolved]
  - Nasopharyngitis [Not Recovered/Not Resolved]
